FAERS Safety Report 8850699 (Version 1)
Quarter: 2012Q4

REPORT INFORMATION
  Report Type: 
  Country: FR (occurrence: FR)
  Receive Date: 20121019
  Receipt Date: 20121019
  Transmission Date: 20130627
  Serious: Yes (Death)
  Sender: FDA-Public Use
  Company Number: FR-JNJFOC-20121008797

PATIENT
  Sex: Female
  Weight: 66 kg

DRUGS (8)
  1. DUROGESIC [Suspect]
     Indication: PAIN
     Route: 062
     Dates: start: 20100308
  2. MYOCET [Suspect]
     Indication: BREAST CANCER METASTATIC
     Route: 042
     Dates: start: 20120706, end: 20120706
  3. SANDOSTATIN [Concomitant]
     Indication: NEOPLASM
     Route: 042
  4. LOVENOX [Concomitant]
     Route: 042
  5. ACTISKENAN [Concomitant]
     Indication: PAIN
     Route: 042
     Dates: start: 20100308
  6. TRANSIPEG [Concomitant]
     Indication: PAIN
     Route: 048
     Dates: start: 20100308
  7. PLITICAN [Concomitant]
     Indication: VOMITING
     Route: 042
     Dates: start: 201007
  8. ANTIDEPRESSANTS [Concomitant]
     Indication: PRODUCT USED FOR UNKNOWN INDICATION
     Route: 048
     Dates: start: 2010

REACTIONS (1)
  - Breast cancer metastatic [Fatal]
